FAERS Safety Report 16123758 (Version 4)
Quarter: 2019Q3

REPORT INFORMATION
  Report Type: Spontaneous
  Country: US (occurrence: SE)
  Receive Date: 20190327
  Receipt Date: 20190723
  Transmission Date: 20191004
  Serious: Yes (Death, Other)
  Sender: FDA-Public Use
  Company Number: US-MYLANLABS-2019M1026886

PATIENT
  Age: 57 Year
  Sex: Male

DRUGS (3)
  1. VICODIN [Suspect]
     Active Substance: ACETAMINOPHEN\HYDROCODONE BITARTRATE
     Indication: PRODUCT USED FOR UNKNOWN INDICATION
     Dosage: UNK
  2. HYDROCODONE [Suspect]
     Active Substance: HYDROCODONE
     Indication: PRODUCT USED FOR UNKNOWN INDICATION
     Dosage: UNK
  3. FENTANYL. [Suspect]
     Active Substance: FENTANYL
     Indication: PAIN
     Dosage: UNK

REACTIONS (4)
  - Toxicity to various agents [Fatal]
  - Drug abuse [Unknown]
  - Intentional product misuse [Unknown]
  - Accidental overdose [Fatal]

NARRATIVE: CASE EVENT DATE: 201604
